FAERS Safety Report 7814169-X (Version None)
Quarter: 2011Q4

REPORT INFORMATION
  Report Type: 
  Country: None (occurrence: None)
  Receive Date: 20111014
  Receipt Date: 20111004
  Transmission Date: 20120403
  Serious: Yes (Other)
  Sender: FDA-Public Use
  Company Number: GB-JNJFOC-20110900112

PATIENT
  Age: 34 Year
  Sex: Male

DRUGS (2)
  1. CETIRIZINE HCL [Suspect]
     Route: 065
  2. CETIRIZINE HCL [Suspect]
     Indication: SEASONAL ALLERGY
     Route: 065

REACTIONS (3)
  - FATIGUE [None]
  - DYSPNOEA [None]
  - COUGH [None]
